FAERS Safety Report 25189133 (Version 2)
Quarter: 2025Q2

REPORT INFORMATION
  Report Type: Spontaneous
  Country: JP (occurrence: JP)
  Receive Date: 20250411
  Receipt Date: 20250430
  Transmission Date: 20250717
  Serious: Yes (Hospitalization)
  Sender: BRISTOL-MYERS SQUIBB COMPANY
  Company Number: JP-BRISTOL-MYERS SQUIBB COMPANY-2024-198733

PATIENT
  Age: 68 Year
  Sex: Male
  Weight: 73.7 kg

DRUGS (10)
  1. AUGTYRO [Suspect]
     Active Substance: REPOTRECTINIB
     Indication: Non-small cell lung cancer
     Route: 048
     Dates: start: 20241217, end: 20241218
  2. AUGTYRO [Suspect]
     Active Substance: REPOTRECTINIB
     Route: 048
     Dates: start: 20241229
  3. AUGTYRO [Suspect]
     Active Substance: REPOTRECTINIB
     Route: 048
     Dates: start: 20250107
  4. AUGTYRO [Suspect]
     Active Substance: REPOTRECTINIB
     Route: 048
     Dates: start: 20250131
  5. ELIQUIS [Concomitant]
     Active Substance: APIXABAN
     Indication: Prophylaxis
     Route: 048
  6. ALLOPURINOL [Concomitant]
     Active Substance: ALLOPURINOL
     Indication: Hyperuricaemia
     Route: 048
  7. AVAPRO [Concomitant]
     Active Substance: IRBESARTAN
     Indication: Hypertension
     Route: 048
  8. CALCIUM CARBONATE\CHOLECALCIFEROL\MAGNESIUM CARBONATE [Concomitant]
     Active Substance: CALCIUM CARBONATE\CHOLECALCIFEROL\MAGNESIUM CARBONATE
     Indication: Lung adenocarcinoma
     Route: 048
  9. DIMEMORFAN PHOSPHATE [Concomitant]
     Active Substance: DIMEMORFAN PHOSPHATE
     Indication: Lung adenocarcinoma
     Dosage: 10 (UNIT UNKNOWN) THREE TIMES A DAY
     Route: 048
  10. BILASTINE [Concomitant]
     Active Substance: BILASTINE
     Indication: Conjunctivitis allergic
     Dosage: 20 (UNIT KNOWN) ONCE A DAY
     Route: 048

REACTIONS (2)
  - Dizziness [Recovering/Resolving]
  - White blood cell count decreased [Recovered/Resolved]

NARRATIVE: CASE EVENT DATE: 20241219
